FAERS Safety Report 8112092-7 (Version None)
Quarter: 2012Q1

REPORT INFORMATION
  Report Type: 
  Country: None (occurrence: None)
  Receive Date: 20120203
  Receipt Date: 20120120
  Transmission Date: 20120608
  Serious: Yes (Life-Threatening, Hospitalization)
  Sender: FDA-Public Use
  Company Number: DE-RANBAXY-2009RR-20544

PATIENT
  Age: 80 Year
  Sex: Female
  Weight: 91 kg

DRUGS (15)
  1. LEVOTHYROXINE SODIUM [Concomitant]
     Indication: HYPOTHYROIDISM
     Dosage: 75 UG, QD
     Route: 048
  2. ALBUTEROL SULFATE AUTOHALER [Concomitant]
     Indication: CHRONIC OBSTRUCTIVE PULMONARY DISEASE
     Dosage: 0.1 MG, QID
     Route: 055
     Dates: start: 20080101
  3. PARACODIN BITARTRATE TAB [Concomitant]
     Indication: CHRONIC OBSTRUCTIVE PULMONARY DISEASE
     Dosage: 30 GTT, UNK
     Route: 048
     Dates: start: 20070111
  4. ENALAPRIL MALEATE [Suspect]
     Indication: HYPERTENSION
     Dosage: 10 MG, BID
     Route: 048
  5. LANTUS [Suspect]
     Dosage: 26 IU, UNK
     Route: 058
     Dates: start: 20080317
  6. OMEPRAZOLE [Concomitant]
     Indication: PROPHYLAXIS AGAINST GASTROINTESTINAL ULCER
     Dosage: 20 MG, QD
     Route: 048
  7. LANTUS [Suspect]
     Indication: TYPE 2 DIABETES MELLITUS
     Dosage: 36 IU, QD
     Route: 058
     Dates: start: 20080219
  8. ACETYLSALICYLIC ACID SRT [Concomitant]
     Indication: HEART VALVE INCOMPETENCE
     Dosage: 100 MG, QD
     Route: 048
  9. ACTRAPID PENFILL [Concomitant]
     Dosage: 16-8-10 IU
     Route: 058
     Dates: start: 20080317
  10. CALCIMAGON [Concomitant]
     Indication: OSTEOPOROSIS PROPHYLAXIS
     Dosage: 1 DF, BID
     Route: 048
     Dates: start: 20080201
  11. RISPERIDONE [Concomitant]
     Indication: DEMENTIA
     Dosage: 0.5 MG, QD
     Route: 048
  12. TORSEMIDE [Concomitant]
     Indication: HYPERTENSION
     Dosage: 5 MG, QD
     Route: 048
  13. PREDNISOLONE [Concomitant]
     Indication: CHRONIC OBSTRUCTIVE PULMONARY DISEASE
     Dosage: 20 MG, QD
     Route: 048
     Dates: start: 20080101
  14. CARVEDILOL [Suspect]
     Indication: HYPERTENSION
     Dosage: 12.5 MG, BID
     Route: 048
  15. ACTRAPID PENFILL [Suspect]
     Indication: TYPE 2 DIABETES MELLITUS
     Dosage: 30-18-16 IU
     Route: 058
     Dates: start: 20080219

REACTIONS (2)
  - HYPOGLYCAEMIA [None]
  - DRUG INTERACTION [None]
